FAERS Safety Report 9540200 (Version 3)
Quarter: 2013Q4

REPORT INFORMATION
  Report Type: Other
  Country: DK (occurrence: BE)
  Receive Date: 20130920
  Receipt Date: 20131204
  Transmission Date: 20140711
  Serious: Yes (Hospitalization)
  Sender: FDA-Public Use
  Company Number: BE-FRI-1000049086

PATIENT
  Age: 26 Year
  Sex: Male

DRUGS (14)
  1. ESCITALOPRAM [Suspect]
     Dosage: 10 MG
  2. ESCITALOPRAM [Suspect]
     Dosage: OVERDOSE OF UNKNOWN AMOUNT
  3. CLOPIXOL [Suspect]
     Dosage: 200 MG ONCE EVERY 15TH DAY
  4. CLOPIXOL [Suspect]
     Dosage: OVERDOSE OF UNKNOWN AMOUNT
  5. ETUMINE [Suspect]
     Dosage: 40 MG
  6. ETUMINE [Suspect]
     Dosage: OVERDOSE OF UNKNOWN AMOUNT
  7. DOCTRAZODONE [Suspect]
     Dosage: 200 MG
  8. DOCTRAZODONE [Suspect]
     Dosage: OVERDOSE OF UNKNOWN AMOUNT
  9. LAMBIPOL [Suspect]
     Dosage: 200 MG
  10. LAMBIPOL [Suspect]
     Dosage: OVERDOSE OF UNKNOWN AMOUNT
  11. LORAZEPAM [Suspect]
     Dosage: 2.5 MG
  12. LORAZEPAM [Suspect]
     Dosage: OVERDOSE OF UNKNOWN AMOUNT
  13. SEROQUEL [Suspect]
     Dosage: 600 MG
  14. SEROQUEL [Suspect]
     Dosage: OVERDOSE OF UNKNOWN AMOUNT (300 MG MIDDAY AND AT 17 PM)

REACTIONS (2)
  - Gastrointestinal necrosis [Recovered/Resolved]
  - Overdose [Recovered/Resolved]
